FAERS Safety Report 6923663-5 (Version None)
Quarter: 2010Q3

REPORT INFORMATION
  Report Type: 
  Country: None (occurrence: None)
  Receive Date: 20100813
  Receipt Date: 20100806
  Transmission Date: 20110219
  Serious: Yes (Disabling)
  Sender: FDA-Public Use
  Company Number: B0659108A

PATIENT
  Sex: Male

DRUGS (18)
  1. EPZICOM [Suspect]
     Indication: HIV INFECTION
     Dosage: 1IUAX PER DAY
     Route: 048
     Dates: start: 20090617, end: 20100127
  2. INTELENCE [Suspect]
     Indication: HIV INFECTION
     Dosage: 400MG PER DAY
     Route: 048
     Dates: start: 20090617, end: 20100127
  3. RETROVIR [Suspect]
     Indication: HIV INFECTION
     Dosage: 300MG PER DAY
     Route: 048
     Dates: start: 19961227, end: 20050921
  4. EPIVIR [Suspect]
     Indication: HIV INFECTION
     Dosage: 300MG PER DAY
     Route: 048
     Dates: start: 19970228, end: 20050921
  5. LEXIVA [Suspect]
     Indication: HIV INFECTION
     Dosage: 1400MG PER DAY
     Route: 048
     Dates: start: 20090128, end: 20090617
  6. TRUVADA [Suspect]
     Indication: HIV INFECTION
     Dosage: 1IUAX PER DAY
     Route: 048
     Dates: start: 20070207
  7. INVIRASE [Suspect]
     Indication: HIV INFECTION
     Dosage: 9IUAX PER DAY
     Route: 048
     Dates: start: 19971003, end: 20050921
  8. INTELENCE [Concomitant]
     Route: 048
  9. NORVIR [Concomitant]
     Indication: HIV INFECTION
     Dosage: 100MG PER DAY
     Route: 048
     Dates: start: 20090128, end: 20090617
  10. STOCRIN [Concomitant]
     Indication: HIV INFECTION
     Dosage: 600MG PER DAY
     Route: 048
     Dates: start: 20050921, end: 20071004
  11. KALETRA [Concomitant]
     Indication: HIV INFECTION
     Dosage: 4IUAX PER DAY
     Route: 048
     Dates: start: 20070221, end: 20090128
  12. ISENTRESS [Concomitant]
     Indication: HIV INFECTION
     Dosage: 800MG PER DAY
     Dates: start: 20100127
  13. VITAMEDIN [Concomitant]
     Route: 048
     Dates: start: 20100602, end: 20100621
  14. METHYCOBAL [Concomitant]
     Dosage: 500MCG PER DAY
     Route: 042
     Dates: start: 20100609, end: 20100615
  15. METHYCOBAL [Concomitant]
     Dosage: 1500MCG PER DAY
     Route: 042
     Dates: start: 20100616, end: 20100622
  16. METHYCOBAL [Concomitant]
     Dosage: 3000MG PER DAY
     Route: 048
     Dates: start: 20100622
  17. STOCRIN [Concomitant]
     Dosage: 600MG PER DAY
     Route: 048
     Dates: start: 20100207, end: 20100221
  18. VITAMIN B-12 [Concomitant]
     Route: 065

REACTIONS (3)
  - SPASTIC PARAPLEGIA [None]
  - SPINAL CORD DISORDER [None]
  - VITAMIN B12 DEFICIENCY [None]
